FAERS Safety Report 17560018 (Version 2)
Quarter: 2020Q2

REPORT INFORMATION
  Report Type: Spontaneous
  Country: US (occurrence: US)
  Receive Date: 20200319
  Receipt Date: 20200618
  Transmission Date: 20200713
  Serious: No
  Sender: FDA-Public Use
  Company Number: US-PFIZER INC-2020117593

PATIENT
  Age: 61 Year
  Sex: Female

DRUGS (1)
  1. XELJANZ XR [Suspect]
     Active Substance: TOFACITINIB CITRATE
     Dosage: 11 MG
     Dates: start: 202002

REACTIONS (5)
  - Sensitivity to weather change [Unknown]
  - Arthralgia [Unknown]
  - Burning sensation [Unknown]
  - Condition aggravated [Unknown]
  - Pain in extremity [Unknown]
